FAERS Safety Report 21997719 (Version 9)
Quarter: 2024Q1

REPORT INFORMATION
  Report Type: Report from Study
  Country: MX (occurrence: MX)
  Receive Date: 20230216
  Receipt Date: 20240202
  Transmission Date: 20240409
  Serious: Yes (Hospitalization, Other)
  Sender: FDA-Public Use
  Company Number: MX-002147023-NVSC2023MX019285

PATIENT
  Sex: Male
  Weight: 43 kg

DRUGS (5)
  1. GILENYA [Suspect]
     Active Substance: FINGOLIMOD HYDROCHLORIDE
     Indication: Multiple sclerosis
     Dosage: 0.5 MG, QD
     Route: 048
     Dates: start: 20220630, end: 20231017
  2. GILENYA [Suspect]
     Active Substance: FINGOLIMOD HYDROCHLORIDE
     Dosage: 0.5 MG, QD
     Route: 048
     Dates: start: 20231204
  3. GILENYA [Suspect]
     Active Substance: FINGOLIMOD HYDROCHLORIDE
     Dosage: 0.5 MG, QD, (1 DAY YES AND 1 DAY NO)
     Route: 048
  4. DORZOLAMIDE [Concomitant]
     Active Substance: DORZOLAMIDE
     Indication: Glaucoma
     Dosage: 2 PERCENT, IN EACH EYE, EVERY 12 HOURS (DROPS)
     Route: 047
  5. TIMOLOL [Concomitant]
     Active Substance: TIMOLOL
     Indication: Glaucoma
     Dosage: 5 PERCENT, IN EACH EYE, EVERY 12 HOURS (DROPS)
     Route: 047

REACTIONS (15)
  - Inguinal hernia [Recovered/Resolved]
  - Arrhythmia [Unknown]
  - Multiple sclerosis relapse [Recovered/Resolved with Sequelae]
  - Arthralgia [Recovering/Resolving]
  - Gait disturbance [Recovered/Resolved]
  - Memory impairment [Unknown]
  - Multiple sclerosis relapse [Recovered/Resolved]
  - Multiple sclerosis relapse [Recovering/Resolving]
  - Gait disturbance [Recovering/Resolving]
  - Speech disorder [Recovering/Resolving]
  - Weight decreased [Unknown]
  - Chest pain [Recovered/Resolved]
  - Tachycardia [Unknown]
  - Chest pain [Recovered/Resolved]
  - Product use issue [Unknown]

NARRATIVE: CASE EVENT DATE: 20220101
